FAERS Safety Report 8190839-1 (Version None)
Quarter: 2012Q1

REPORT INFORMATION
  Report Type: 
  Country: None (occurrence: None)
  Receive Date: 20120307
  Receipt Date: 20120228
  Transmission Date: 20120608
  Serious: Yes (Hospitalization, Other)
  Sender: FDA-Public Use
  Company Number: US-MERCK-1105USA00386

PATIENT
  Age: 72 Year
  Sex: Female
  Weight: 61 kg

DRUGS (7)
  1. ALENDRONATE SODIUM [Suspect]
     Indication: OSTEOARTHRITIS
     Route: 048
     Dates: start: 20080301, end: 20100101
  2. FOSAMAX [Suspect]
     Indication: OSTEOARTHRITIS
     Route: 048
     Dates: start: 20020101, end: 20100101
  3. FOSAMAX [Suspect]
     Indication: OSTEOPOROSIS
     Route: 048
     Dates: start: 20020101, end: 20100101
  4. FOSAMAX PLUS D [Suspect]
     Indication: OSTEOPOROSIS
     Route: 048
     Dates: start: 20070501, end: 20080201
  5. COUGH, COLD, AND FLU THERAPIES (UNSPECIFIED) [Concomitant]
     Route: 065
  6. FOSAMAX PLUS D [Suspect]
     Indication: OSTEOARTHRITIS
     Route: 048
     Dates: start: 20070501, end: 20080201
  7. ALENDRONATE SODIUM [Suspect]
     Indication: OSTEOPOROSIS
     Route: 048
     Dates: start: 20080301, end: 20100101

REACTIONS (37)
  - CELLULITIS [None]
  - ANXIETY [None]
  - DACRYOSTENOSIS ACQUIRED [None]
  - HYPERLIPIDAEMIA [None]
  - BURSITIS [None]
  - LOOSE BODY IN JOINT [None]
  - JOINT EFFUSION [None]
  - ANIMAL BITE [None]
  - HYPERTENSION [None]
  - LUMBAR SPINAL STENOSIS [None]
  - AORTIC ARTERIOSCLEROSIS [None]
  - ARTHROPATHY [None]
  - LEFT VENTRICULAR HYPERTROPHY [None]
  - HYPERCHOLESTEROLAEMIA [None]
  - DRUG INEFFECTIVE [None]
  - CARDIAC VALVE DISEASE [None]
  - FEMUR FRACTURE [None]
  - DRY EYE [None]
  - CATARACT [None]
  - TENDON DISORDER [None]
  - RENAL FAILURE [None]
  - NORMOCHROMIC NORMOCYTIC ANAEMIA [None]
  - LEUKOCYTOSIS [None]
  - ENTHESOPATHY [None]
  - DYSURIA [None]
  - ANAEMIA [None]
  - OSTEOARTHRITIS [None]
  - HYPOTHYROIDISM [None]
  - SPINAL OSTEOARTHRITIS [None]
  - LOW TURNOVER OSTEOPATHY [None]
  - CONSTIPATION [None]
  - DEPRESSION [None]
  - RHEUMATOID ARTHRITIS [None]
  - GASTROOESOPHAGEAL REFLUX DISEASE [None]
  - INTERVERTEBRAL DISC PROTRUSION [None]
  - MUSCULOSKELETAL PAIN [None]
  - OFF LABEL USE [None]
